FAERS Safety Report 10373872 (Version 1)
Quarter: 2014Q1

REPORT INFORMATION
  Report Type: Spontaneous
  Country: US (occurrence: None)
  Receive Date: 20140306
  Receipt Date: 20140306
  Transmission Date: 20141002
  Serious: Yes (Hospitalization, Other)
  Sender: FDA-Public Use
  Company Number: 163-21880-13105907

PATIENT
  Age: 65 Year
  Sex: Female

DRUGS (24)
  1. REVLIMID [Suspect]
     Indication: PLASMA CELL MYELOMA
     Route: 048
     Dates: start: 200811
  2. NEXIUM [Concomitant]
  3. MECLIZINE [Concomitant]
  4. OMEPRAZOLE [Concomitant]
  5. LEVAQUIN [Concomitant]
  6. OXYCODONE [Concomitant]
  7. SMZ-TMP [Concomitant]
  8. OXYCODONE/APAP (TABLETS) [Concomitant]
  9. NABUMETONE (TABLETS) [Concomitant]
  10. LEXAPRO (ESCITALOPRAM OXALATE) (TABLETS) [Concomitant]
  11. IBUPROFEN (TABLETS) [Concomitant]
  12. HYDROCODONE/ACETAMINOPHEN (REMEDEINE) [Concomitant]
  13. NITROFURANTOIN MONO/MAC [Concomitant]
  14. METOPROLOL TARTRATE [Concomitant]
  15. PEG-3350 + ELECTROLYTES (COLYTE ^REED^) [Concomitant]
  16. POTASSIUM CL (POTASSIUM CHLORIDE) (TABLETS) [Concomitant]
  17. LEVOTHYROXINE [Concomitant]
  18. PREDNISONE (TABLETS) [Concomitant]
  19. MUPIROCIN (OINTMENT) [Concomitant]
  20. DEXAMETHASONE (TABLETS) [Concomitant]
  21. PAROXETINE (TABLETS) [Concomitant]
  22. FOLIC ACID (TABLETS) [Concomitant]
  23. TRAMADOL (TABLETS) [Concomitant]
  24. METHOTREXATE (TABLETS) [Concomitant]

REACTIONS (4)
  - Gastrointestinal haemorrhage [None]
  - Constipation [None]
  - Dehydration [None]
  - Full blood count decreased [None]
